FAERS Safety Report 18574890 (Version 1)
Quarter: 2020Q4

REPORT INFORMATION
  Report Type: Spontaneous
  Country: US (occurrence: US)
  Receive Date: 20201202
  Receipt Date: 20201202
  Transmission Date: 20210114
  Serious: No
  Sender: FDA-Public Use
  Company Number: None

PATIENT
  Age: 77 Year
  Sex: Male

DRUGS (1)
  1. LATANOPROST(LATANOPROST 0.005% SOLN, OPH) [Suspect]
     Active Substance: LATANOPROST
     Indication: GLAUCOMA
     Dates: start: 20190115

REACTIONS (1)
  - Rash [None]

NARRATIVE: CASE EVENT DATE: 20190129
